FAERS Safety Report 26004413 (Version 1)
Quarter: 2025Q4

REPORT INFORMATION
  Report Type: Spontaneous
  Country: GB (occurrence: GB)
  Receive Date: 20251106
  Receipt Date: 20251106
  Transmission Date: 20260118
  Serious: Yes (Other)
  Sender: DEXCEL LTD.
  Company Number: None

PATIENT
  Age: 69 Year
  Sex: Female
  Weight: 109 kg

DRUGS (29)
  1. HYDROCORTISONE [Concomitant]
     Active Substance: HYDROCORTISONE
     Indication: Ill-defined disorder
     Dosage: APPLY SPARINGLY TWICE A DAY
     Dates: start: 20250919, end: 20251017
  2. FUSIDIC ACID [Concomitant]
     Active Substance: FUSIDIC ACID
     Indication: Ill-defined disorder
     Dosage: APPLY THREE TIMES A DAY FOR SEVEN DAYS
     Dates: start: 20251001, end: 20251008
  3. CARBOCYSTEINE [Concomitant]
     Active Substance: CARBOCYSTEINE
     Indication: Ill-defined disorder
     Dosage: ONE TO BE TAKEN THREE TIMES PER DAY
     Dates: start: 20251010, end: 20251020
  4. CROMOLYN SODIUM [Concomitant]
     Active Substance: CROMOLYN SODIUM
     Indication: Ill-defined disorder
     Dosage: 1 DROP EACH EYE FOUR TIMES A DAY
     Dates: start: 20251030
  5. REFRESH CELLUVISC [Concomitant]
     Active Substance: CARBOXYMETHYLCELLULOSE SODIUM
     Indication: Ill-defined disorder
     Dosage: 1-2 DROPS AS DIRECTED
     Dates: start: 20230510
  6. DOCUSATE SODIUM [Concomitant]
     Active Substance: DOCUSATE SODIUM
     Indication: Ill-defined disorder
     Dosage: ONE TO BE TAKEN TWICE A DAY
     Dates: start: 20230510
  7. ESTRADIOL [Concomitant]
     Active Substance: ESTRADIOL
     Indication: Ill-defined disorder
     Dosage: ONE TO BE INSERTED TWICE A WEEK
     Dates: start: 20230510
  8. FEXOFENADINE [Concomitant]
     Active Substance: FEXOFENADINE HYDROCHLORIDE
     Indication: Ill-defined disorder
     Dosage: ONE TO BE TAKEN EACH DAY
     Dates: start: 20230510
  9. PERINDOPRIL ERBUMINE [Concomitant]
     Active Substance: PERINDOPRIL ERBUMINE
     Indication: Ill-defined disorder
     Dosage: ONE TO BE TAKEN EACH MORNING BEFORE FOOD
     Dates: start: 20230510
  10. STERIMARNON-MEDICINAL PRODUCT [Concomitant]
     Indication: Ill-defined disorder
     Dosage: THREE TIMES A DAY
     Dates: start: 20230510
  11. ZOPICLONE [Concomitant]
     Active Substance: ZOPICLONE
     Indication: Ill-defined disorder
     Dosage: ONE TO BE TAKEN AT NIGHT PRN MAX 2 PER WEEK
     Dates: start: 20230510
  12. BENDROFLUMETHIAZIDE [Concomitant]
     Active Substance: BENDROFLUMETHIAZIDE
     Indication: Ill-defined disorder
     Dosage: ONE TO BE TAKEN DAILY
     Dates: start: 20230510
  13. HYLO NIGHTNON-MEDICINAL PRODUCT [Concomitant]
     Indication: Ill-defined disorder
     Dosage: INSTIL AT NIGHT
     Dates: start: 20230510
  14. XAILIN NIGHTNON-MEDICINAL PRODUCT [Concomitant]
     Indication: Ill-defined disorder
     Dosage: APPLY AT NIGHT AS REQUIRED
     Dates: start: 20230510
  15. BECLOMETHASONE DIPROPIONATE [Concomitant]
     Active Substance: BECLOMETHASONE DIPROPIONATE
     Indication: Ill-defined disorder
     Dosage: 1 PUFF TWICE A DAY
     Dates: start: 20230607
  16. EPIMAX EXCETRANON-MEDICINAL PRODUCT [Concomitant]
     Indication: Ill-defined disorder
     Dosage: MODERATE DRY SKIN SECONDARY TO A DIAGNOSED DERM...
     Dates: start: 20230607
  17. IPRATROPIUM BROMIDE [Concomitant]
     Active Substance: IPRATROPIUM BROMIDE
     Indication: Ill-defined disorder
     Dosage: USE AS DIRECTED
     Dates: start: 20230607
  18. MEBEVERINE HYDROCHLORIDE [Concomitant]
     Active Substance: MEBEVERINE HYDROCHLORIDE
     Indication: Ill-defined disorder
     Dosage: ONE TO BE TAKEN THREE TIMES A DAY TWENTY MINUTE...
     Dates: start: 20230607
  19. TERBINAFINE [Concomitant]
     Active Substance: TERBINAFINE
     Indication: Ill-defined disorder
     Dosage: APPLY TWICE A DAY FOR 2 WEEKS
     Dates: start: 20230607
  20. NAPROXEN [Concomitant]
     Active Substance: NAPROXEN
     Indication: Ill-defined disorder
     Dosage: ONE TO BE TAKEN EACH DAY
     Dates: start: 20230926
  21. NORTRIPTYLINE [Concomitant]
     Active Substance: NORTRIPTYLINE
     Indication: Ill-defined disorder
     Dosage: START WITH ONE TABLET ON ALTERNATE NIGHTS FOR 1...
     Dates: start: 20240319, end: 20251030
  22. AMLODIPINE [Concomitant]
     Active Substance: AMLODIPINE BESYLATE
     Indication: Ill-defined disorder
     Dosage: TAKE ONE DAILY
     Dates: start: 20240528
  23. FUROSEMIDE [Concomitant]
     Active Substance: FUROSEMIDE
     Indication: Ill-defined disorder
     Dosage: ONE TO BE TAKEN DAILY
     Dates: start: 20240605
  24. AMITRIPTYLINE HYDROCHLORIDE [Concomitant]
     Active Substance: AMITRIPTYLINE HYDROCHLORIDE
     Indication: Ill-defined disorder
     Dosage: TAKE THREE TABLETS AT NIGHT
     Dates: start: 20241023
  25. ASPIRIN [Concomitant]
     Active Substance: ASPIRIN
     Indication: Ill-defined disorder
     Dosage: TAKE ONE DAILY
     Dates: start: 20241203
  26. BECLOMETHASONE DIPROPIONATE [Concomitant]
     Active Substance: BECLOMETHASONE DIPROPIONATE
     Indication: Ill-defined disorder
     Dosage: TWO PUFFS TWICE A DAY
     Dates: start: 20250603
  27. EZETIMIBE [Concomitant]
     Active Substance: EZETIMIBE
     Indication: Ill-defined disorder
     Dosage: TAKE ONE DAILY
     Dates: start: 20251022
  28. ROSUVASTATIN [Concomitant]
     Active Substance: ROSUVASTATIN
     Indication: Ill-defined disorder
     Dosage: TAKE ONE EVERY OTHER DAY
     Dates: start: 20251022
  29. OMEPRAZOLE [Suspect]
     Active Substance: OMEPRAZOLE
     Indication: Adverse drug reaction
     Route: 050
     Dates: start: 20251030

REACTIONS (2)
  - Barrett^s oesophagus [Unknown]
  - Oesophageal irritation [Unknown]
